FAERS Safety Report 7919579-8 (Version None)
Quarter: 2011Q4

REPORT INFORMATION
  Report Type: 
  Country: None (occurrence: None)
  Receive Date: 20111116
  Receipt Date: 20111116
  Transmission Date: 20120403
  Serious: Yes (Hospitalization)
  Sender: FDA-Public Use
  Company Number: None

PATIENT
  Age: 34 Year
  Sex: Male
  Weight: 127.6 kg

DRUGS (3)
  1. NAPROXEN [Suspect]
     Indication: GOUT
     Dosage: 500MG BID PO CHRONIC
     Route: 048
  2. ALLOPURINOL [Concomitant]
  3. COLCHICINE [Concomitant]

REACTIONS (5)
  - OESOPHAGEAL RUPTURE [None]
  - ABDOMINAL PAIN UPPER [None]
  - ERYTHEMA [None]
  - GASTRITIS [None]
  - UPPER GASTROINTESTINAL HAEMORRHAGE [None]
